FAERS Safety Report 4676632-2 (Version None)
Quarter: 2005Q2

REPORT INFORMATION
  Report Type: 
  Country: None (occurrence: None)
  Receive Date: 20050526
  Receipt Date: 20050516
  Transmission Date: 20051028
  Serious: Yes (Hospitalization, Other)
  Sender: FDA-Public Use
  Company Number: 2005054611

PATIENT
  Age: 79 Year
  Sex: Male
  Weight: 70 kg

DRUGS (11)
  1. NORVASC [Suspect]
     Indication: HYPERTENSION
     Dosage: 5 MG (5 MG, 1 IN 24HR), ORAL
     Route: 048
     Dates: start: 20050324, end: 20050331
  2. ASPIRIN [Concomitant]
  3. FLUITRAN                               (TRICHLORMETHIAZIDE) [Concomitant]
  4. ADALAT [Concomitant]
  5. SELBEX (TEPRENONE) [Concomitant]
  6. HARNAL           (TAMSULOSIN HYDROCHLORIDE) [Concomitant]
  7. GLYBURIDE [Concomitant]
  8. PERSANTIN [Concomitant]
  9. DORNER                   (BERAPROST SODIUM) [Concomitant]
  10. ALLOPURINOL [Concomitant]
  11. TAKEPRON              (LANSOPRAZOLE) [Concomitant]

REACTIONS (14)
  - ACUTE PRERENAL FAILURE [None]
  - ANAEMIA [None]
  - ANOREXIA [None]
  - AORTIC ANEURYSM [None]
  - DEHYDRATION [None]
  - DIARRHOEA [None]
  - DIZZINESS [None]
  - FAECES DISCOLOURED [None]
  - FEELING ABNORMAL [None]
  - LOSS OF CONSCIOUSNESS [None]
  - PYREXIA [None]
  - RENAL IMPAIRMENT [None]
  - SPEECH DISORDER [None]
  - URINE OUTPUT DECREASED [None]
